FAERS Safety Report 5306693-9 (Version None)
Quarter: 2007Q2

REPORT INFORMATION
  Report Type: 
  Country: None (occurrence: None)
  Receive Date: 20070424
  Receipt Date: 20070412
  Transmission Date: 20071010
  Serious: Yes (Other)
  Sender: FDA-Public Use
  Company Number: US-PFIZER INC-2007030820

PATIENT
  Sex: Female
  Weight: 59 kg

DRUGS (3)
  1. LYRICA [Suspect]
     Indication: ANXIETY
     Dates: start: 20070401, end: 20070412
  2. LYRICA [Suspect]
     Indication: PAIN
  3. CYMBALTA [Concomitant]

REACTIONS (1)
  - CONVULSION [None]
